FAERS Safety Report 12828401 (Version 1)
Quarter: 2016Q4

REPORT INFORMATION
  Report Type: Spontaneous
  Country: IT (occurrence: IT)
  Receive Date: 20161007
  Receipt Date: 20161007
  Transmission Date: 20170207
  Serious: Yes (Other)
  Sender: FDA-Public Use
  Company Number: IT-JNJFOC-20161004605

PATIENT
  Age: 75 Year
  Sex: Male

DRUGS (9)
  1. DOXORUBICIN HYDROCLORIDE [Suspect]
     Active Substance: DOXORUBICIN HYDROCHLORIDE
     Indication: DIFFUSE LARGE B-CELL LYMPHOMA
     Route: 065
     Dates: start: 200907
  2. MIRTAZAPINE. [Concomitant]
     Active Substance: MIRTAZAPINE
     Route: 065
  3. MEFLOQUINE [Concomitant]
     Active Substance: MEFLOQUINE
     Dosage: 250 MG QD FOR 4 DAYS AND THEN 250 MG QW
     Route: 065
  4. PREDNISONE. [Suspect]
     Active Substance: PREDNISONE
     Indication: DIFFUSE LARGE B-CELL LYMPHOMA
     Route: 065
     Dates: start: 200907
  5. INTERLEUKIN-2 [Concomitant]
     Active Substance: ALDESLEUKIN
     Route: 065
  6. RITUXIMAB [Suspect]
     Active Substance: RITUXIMAB
     Indication: DIFFUSE LARGE B-CELL LYMPHOMA
     Dosage: 375 MG/M2 EVERY 21 DAYS, 8 CYCLES
     Route: 065
     Dates: start: 200907
  7. CIDOFOVIR. [Concomitant]
     Active Substance: CIDOFOVIR
     Route: 065
  8. CYCLOPHOSPHAMIDE. [Suspect]
     Active Substance: CYCLOPHOSPHAMIDE
     Indication: DIFFUSE LARGE B-CELL LYMPHOMA
     Route: 065
     Dates: start: 200907
  9. VINCRISTIN [Suspect]
     Active Substance: VINCRISTINE
     Indication: DIFFUSE LARGE B-CELL LYMPHOMA
     Route: 065
     Dates: start: 200907

REACTIONS (3)
  - Progressive multifocal leukoencephalopathy [Unknown]
  - Product use issue [Unknown]
  - Off label use [Unknown]
